FAERS Safety Report 17006788 (Version 3)
Quarter: 2022Q2

REPORT INFORMATION
  Report Type: Report from Study
  Country: US (occurrence: US)
  Receive Date: 20191107
  Receipt Date: 20220509
  Transmission Date: 20220721
  Serious: Yes (Death, Hospitalization, Other)
  Sender: FDA-Public Use
  Company Number: US-GILEAD-2018-0353274

PATIENT
  Age: 78 Year
  Sex: Male
  Weight: 70 kg

DRUGS (84)
  1. AXICABTAGENE CILOLEUCEL [Suspect]
     Active Substance: AXICABTAGENE CILOLEUCEL
     Indication: Follicular lymphoma
     Dosage: 68 ML, ONCE
     Route: 042
     Dates: start: 20180730, end: 20180730
  2. CYCLOPHOSPHAMIDE [Suspect]
     Active Substance: CYCLOPHOSPHAMIDE
     Indication: Bone marrow conditioning regimen
     Dosage: 500 MG/M2, QD
     Route: 042
     Dates: start: 20180725, end: 20180727
  3. FLUDARABINE [Suspect]
     Active Substance: FLUDARABINE PHOSPHATE
     Indication: Bone marrow conditioning regimen
     Dosage: 30 MG/M2, QD
     Route: 042
     Dates: start: 20180725, end: 20180727
  4. BACTRIM DS [Concomitant]
     Active Substance: SULFAMETHOXAZOLE\TRIMETHOPRIM
     Indication: Nocardiosis
     Dosage: UNK
     Dates: start: 201712, end: 20180803
  5. BACTRIM DS [Concomitant]
     Active Substance: SULFAMETHOXAZOLE\TRIMETHOPRIM
     Dosage: 1,OTHER,TWICE DAILY
     Route: 048
     Dates: start: 20180824, end: 20180912
  6. BACTRIM DS [Concomitant]
     Active Substance: SULFAMETHOXAZOLE\TRIMETHOPRIM
     Dosage: 160,MG,TWICE DAILY
     Route: 041
     Dates: start: 20180913, end: 20180914
  7. ATORVASTATIN [Concomitant]
     Active Substance: ATORVASTATIN
     Dosage: UNK
     Dates: start: 2013, end: 20180801
  8. ATORVASTATIN [Concomitant]
     Active Substance: ATORVASTATIN
     Dosage: 40,MG,DAILY
     Route: 048
     Dates: start: 20180907, end: 20190911
  9. ATORVASTATIN [Concomitant]
     Active Substance: ATORVASTATIN
     Dosage: 40,MG,DAILY
     Route: 048
     Dates: start: 20180907, end: 20180911
  10. ASPIRIN [Concomitant]
     Active Substance: ASPIRIN
     Dosage: UNK
     Dates: start: 2013, end: 20180801
  11. ASPIRIN [Concomitant]
     Active Substance: ASPIRIN
     Dosage: 81,MG,DAILY
     Route: 048
     Dates: start: 20180907, end: 20180911
  12. MINOCYCLINE [Concomitant]
     Active Substance: MINOCYCLINE HYDROCHLORIDE
     Dosage: UNK
     Dates: start: 201712, end: 20180803
  13. OXYCODONE [Concomitant]
     Active Substance: OXYCODONE
     Dosage: 5,MG,AS NECESSARY
     Route: 048
     Dates: start: 20180327, end: 20180830
  14. OXYCODONE [Concomitant]
     Active Substance: OXYCODONE
     Dosage: 5,MG,AS NECESSARY
     Route: 048
     Dates: start: 20180907, end: 20180911
  15. CALCIUM GLUCONATE [Concomitant]
     Active Substance: CALCIUM GLUCONATE
     Dosage: UNK
     Dates: start: 20180702, end: 20180702
  16. MAGNESIUM OXIDE [Concomitant]
     Active Substance: MAGNESIUM OXIDE
     Dosage: UNK
     Dates: start: 20180702, end: 20180702
  17. POTASSIUM CHLORIDE [Concomitant]
     Active Substance: POTASSIUM CHLORIDE
     Dosage: UNK
     Dates: start: 20180702, end: 20180702
  18. POTASSIUM CHLORIDE [Concomitant]
     Active Substance: POTASSIUM CHLORIDE
     Dosage: UNK
     Dates: start: 20180801, end: 20180801
  19. POTASSIUM CHLORIDE [Concomitant]
     Active Substance: POTASSIUM CHLORIDE
     Dosage: UNK
     Dates: start: 20180802, end: 20180802
  20. CALCIUM CARBONATE [Concomitant]
     Active Substance: CALCIUM CARBONATE
     Dosage: UNK
     Dates: start: 20180702, end: 20180702
  21. ANTICOAGULANT CITRATE DEXTROSE SOLUTION (ACD) NOS [Concomitant]
     Active Substance: CITRIC ACID MONOHYDRATE\DEXTROSE\SODIUM CITRATE
     Dosage: UNK
     Dates: start: 20180702, end: 20180702
  22. FILGRASTIM [Concomitant]
     Active Substance: FILGRASTIM
     Dosage: UNK
     Dates: start: 20180702, end: 20180702
  23. FILGRASTIM [Concomitant]
     Active Substance: FILGRASTIM
     Dosage: UNK
     Dates: start: 20180723, end: 20180724
  24. FILGRASTIM [Concomitant]
     Active Substance: FILGRASTIM
     Dosage: UNK
     Dates: start: 20180728, end: 20180729
  25. FILGRASTIM [Concomitant]
     Active Substance: FILGRASTIM
     Dosage: 300,OTHER,DAILY
     Route: 058
     Dates: start: 20180821, end: 20180829
  26. FILGRASTIM [Concomitant]
     Active Substance: FILGRASTIM
     Dosage: 300,MG,OTHER
     Route: 058
     Dates: start: 20180911, end: 20180911
  27. PREDNISONE [Concomitant]
     Active Substance: PREDNISONE
     Dosage: 40 MG, UNK
     Dates: start: 20180723, end: 20180724
  28. PREDNISONE [Concomitant]
     Active Substance: PREDNISONE
     Dosage: 50,MG,DAILY
     Route: 048
     Dates: start: 20180911, end: 20190912
  29. PREDNISONE [Concomitant]
     Active Substance: PREDNISONE
     Dosage: 50,MG,DAILY
     Route: 048
     Dates: start: 20180911, end: 20180912
  30. ALLOPURINOL [Concomitant]
     Active Substance: ALLOPURINOL
     Dosage: UNK
     Dates: start: 20180725, end: 20180808
  31. PLATELETS [Concomitant]
     Active Substance: HUMAN PLATELET, ALLOGENIC
     Dosage: UNK
     Dates: start: 20180725, end: 20180725
  32. PLATELETS [Concomitant]
     Active Substance: HUMAN PLATELET, ALLOGENIC
     Dosage: UNK
     Dates: start: 20180730, end: 20180730
  33. PLATELETS [Concomitant]
     Active Substance: HUMAN PLATELET, ALLOGENIC
     Dosage: UNK
     Dates: start: 20180802, end: 20180802
  34. PLATELETS [Concomitant]
     Active Substance: HUMAN PLATELET, ALLOGENIC
     Dosage: UNK
     Dates: start: 20180804, end: 20180804
  35. PLATELETS [Concomitant]
     Active Substance: HUMAN PLATELET, ALLOGENIC
     Dosage: UNK
     Dates: start: 20180806, end: 20180806
  36. PLATELETS [Concomitant]
     Active Substance: HUMAN PLATELET, ALLOGENIC
     Dosage: UNK
     Dates: start: 20180809, end: 20180809
  37. PLATELETS [Concomitant]
     Active Substance: HUMAN PLATELET, ALLOGENIC
     Dosage: UNK
     Dates: start: 20180811, end: 20180811
  38. PLATELETS [Concomitant]
     Active Substance: HUMAN PLATELET, ALLOGENIC
     Dosage: UNK
     Dates: start: 20180814, end: 20180814
  39. PLATELETS [Concomitant]
     Active Substance: HUMAN PLATELET, ALLOGENIC
     Dosage: 1,OTHER,OTHER
     Route: 041
     Dates: start: 20180823, end: 20180823
  40. PLATELETS [Concomitant]
     Active Substance: HUMAN PLATELET, ALLOGENIC
     Dosage: 1,OTHER,OTHER
     Route: 041
     Dates: start: 20180825, end: 20180825
  41. PLATELETS [Concomitant]
     Active Substance: HUMAN PLATELET, ALLOGENIC
     Dosage: 1,OTHER,OTHER
     Route: 041
     Dates: start: 20180828, end: 20180828
  42. PLATELETS [Concomitant]
     Active Substance: HUMAN PLATELET, ALLOGENIC
     Dosage: 1,OTHER,DAILY
     Route: 041
     Dates: start: 20180829, end: 20180829
  43. PLATELETS [Concomitant]
     Active Substance: HUMAN PLATELET, ALLOGENIC
     Dosage: 1,OTHER,OTHER
     Route: 041
     Dates: start: 20180905, end: 20180905
  44. PLATELETS [Concomitant]
     Active Substance: HUMAN PLATELET, ALLOGENIC
     Dosage: 1,OTHER,OTHER
     Route: 041
     Dates: start: 20180816, end: 20180816
  45. PLATELETS [Concomitant]
     Active Substance: HUMAN PLATELET, ALLOGENIC
     Dosage: 1,OTHER,OTHER
     Route: 041
     Dates: start: 20180820, end: 20180820
  46. ONDANSETRON [Concomitant]
     Active Substance: ONDANSETRON
     Dosage: 4,MG,AS NECESSARY
     Route: 048
     Dates: start: 20180510, end: 20180510
  47. ONDANSETRON [Concomitant]
     Active Substance: ONDANSETRON
     Dosage: 16 MG, UNK
     Dates: start: 20180725, end: 20180727
  48. ONDANSETRON [Concomitant]
     Active Substance: ONDANSETRON
     Dosage: 4,MG,AS NECESSARY
     Route: 041
     Dates: start: 20180731, end: 20180830
  49. SODIUM CHLORIDE [Concomitant]
     Active Substance: SODIUM CHLORIDE
     Dosage: UNK
     Dates: start: 20180725, end: 20180727
  50. SODIUM CHLORIDE [Concomitant]
     Active Substance: SODIUM CHLORIDE
     Dosage: UNK
     Dates: start: 20180728, end: 20180728
  51. SODIUM CHLORIDE [Concomitant]
     Active Substance: SODIUM CHLORIDE
     Dosage: UNK
     Dates: start: 20180730, end: 20180731
  52. SODIUM CHLORIDE [Concomitant]
     Active Substance: SODIUM CHLORIDE
     Dosage: UNK
     Dates: start: 20180807, end: 20180808
  53. SODIUM CHLORIDE [Concomitant]
     Active Substance: SODIUM CHLORIDE
     Dosage: 80,ML,OTHER, 0.9%
     Route: 041
     Dates: start: 20180914, end: 20180914
  54. BENADRYL                           /00000402/ [Concomitant]
     Dosage: ONCE
     Dates: start: 20180725, end: 20180725
  55. BENADRYL                           /00000402/ [Concomitant]
     Dosage: UNK
     Dates: start: 20180730, end: 20180730
  56. LOMOTIL                            /00034001/ [Concomitant]
     Dosage: UNK
     Dates: start: 20180627, end: 20180628
  57. ACETAMINOPHEN [Concomitant]
     Active Substance: ACETAMINOPHEN
     Dosage: UNK
     Dates: start: 20180730, end: 20180730
  58. ACETAMINOPHEN [Concomitant]
     Active Substance: ACETAMINOPHEN
     Dosage: 650,MG,AS NECESSARY
     Route: 048
     Dates: start: 20180731, end: 20180830
  59. ENOXAPARIN [Concomitant]
     Active Substance: ENOXAPARIN
     Dosage: 40,MG,DAILY
     Route: 058
     Dates: start: 20180730, end: 20180830
  60. FLUCONAZOLE [Concomitant]
     Active Substance: FLUCONAZOLE
     Dosage: UNK
     Dates: start: 20180730, end: 20180730
  61. FLUCONAZOLE [Concomitant]
     Active Substance: FLUCONAZOLE
     Dosage: UNK
     Dates: start: 20180731, end: 20180803
  62. FLUCONAZOLE [Concomitant]
     Active Substance: FLUCONAZOLE
     Dosage: UNK
     Dates: start: 20180804, end: 20180806
  63. FLUCONAZOLE [Concomitant]
     Active Substance: FLUCONAZOLE
     Dosage: 400,MG,DAILY
     Route: 048
     Dates: start: 20180825, end: 20180911
  64. FLUCONAZOLE [Concomitant]
     Active Substance: FLUCONAZOLE
     Dosage: 400,MG,DAILY
     Route: 041
     Dates: start: 20180913, end: 20180914
  65. LEVETIRACETAM [Concomitant]
     Active Substance: LEVETIRACETAM
     Dosage: UNK
     Dates: start: 20180730, end: 20180803
  66. LEVETIRACETAM [Concomitant]
     Active Substance: LEVETIRACETAM
     Dosage: UNK
     Dates: start: 20180804, end: 20180810
  67. LEVETIRACETAM [Concomitant]
     Active Substance: LEVETIRACETAM
     Dosage: 1000,MG,TWICE DAILY
     Route: 041
     Dates: start: 20180811, end: 20180823
  68. LEVETIRACETAM [Concomitant]
     Active Substance: LEVETIRACETAM
     Dosage: 1000,MG,TWICE DAILY
     Route: 048
     Dates: start: 20180824, end: 20180826
  69. LEVETIRACETAM [Concomitant]
     Active Substance: LEVETIRACETAM
     Dosage: 750,MG,TWICE DAILY
     Route: 048
     Dates: start: 20180827, end: 20180829
  70. LEVOFLOXACIN [Concomitant]
     Active Substance: LEVOFLOXACIN
     Dosage: UNK
     Dates: start: 20180730, end: 20180730
  71. NICOTINE [Concomitant]
     Active Substance: NICOTINE
     Dosage: UNK
     Dates: start: 20180730, end: 20180805
  72. NICOTINE [Concomitant]
     Active Substance: NICOTINE
     Dosage: UNK
     Dates: start: 20180806, end: 20180810
  73. NICOTINE [Concomitant]
     Active Substance: NICOTINE
     Dosage: 14,MG,DAILY
     Route: 061
     Dates: start: 20180811, end: 20180830
  74. ACYCLOVIR                          /00587301/ [Concomitant]
     Dosage: UNK
     Dates: start: 20180730, end: 20180803
  75. ACYCLOVIR                          /00587301/ [Concomitant]
     Dosage: UNK
     Dates: start: 20180804, end: 20180807
  76. ACYCLOVIR                          /00587301/ [Concomitant]
     Dosage: UNK
     Dates: start: 20180808, end: 20180808
  77. ACYCLOVIR                          /00587301/ [Concomitant]
     Dosage: 300,MG,TWICE DAILY
     Route: 041
     Dates: start: 20180809, end: 20180823
  78. ACYCLOVIR                          /00587301/ [Concomitant]
     Dosage: 400,MG,THREE TIMES DAILY
     Route: 048
     Dates: start: 20180824, end: 20180912
  79. ACYCLOVIR                          /00587301/ [Concomitant]
     Dosage: UNK
     Dates: start: 20180913, end: 20180914
  80. HUMAN RED BLOOD CELL [Concomitant]
     Active Substance: HUMAN RED BLOOD CELL
     Dosage: 1,OTHER,OTHER
     Route: 041
     Dates: start: 20180905, end: 20180905
  81. HUMAN RED BLOOD CELL [Concomitant]
     Active Substance: HUMAN RED BLOOD CELL
     Dosage: 1,OTHER,OTHER
     Route: 041
     Dates: start: 20180914, end: 20180914
  82. ASPIRIN [Concomitant]
     Active Substance: ASPIRIN
     Dosage: 81,MG,DAILY
     Route: 048
     Dates: start: 20180907, end: 20180911
  83. BACTRIM [Concomitant]
     Active Substance: SULFAMETHOXAZOLE\TRIMETHOPRIM
     Dosage: 160,MG,TWICE DAILY
     Route: 041
     Dates: start: 20180913, end: 20180914
  84. SODIUM CHLORIDE [Concomitant]
     Active Substance: SODIUM CHLORIDE
     Dosage: 80,ML,OTHER
     Route: 041
     Dates: start: 20180914, end: 20180914

REACTIONS (11)
  - Confusional state [Recovered/Resolved]
  - Cytokine release syndrome [Recovered/Resolved]
  - Hypoxia [Recovered/Resolved]
  - Pyrexia [Recovered/Resolved]
  - Confusional state [Recovered/Resolved]
  - Somnolence [Recovered/Resolved]
  - Dysphagia [Recovered/Resolved]
  - Encephalopathy [Recovered/Resolved]
  - Confusional state [Recovered/Resolved]
  - Follicular lymphoma [Fatal]
  - Respiratory failure [Recovered/Resolved]

NARRATIVE: CASE EVENT DATE: 20180731
